FAERS Safety Report 9056192 (Version 2)
Quarter: 2013Q1

REPORT INFORMATION
  Report Type: Report from Study
  Country: FR (occurrence: FR)
  Receive Date: 20130205
  Receipt Date: 20130312
  Transmission Date: 20140127
  Serious: Yes (Death)
  Sender: FDA-Public Use
  Company Number: FR-GENZYME-CAMP-1002720

PATIENT
  Age: 64 None
  Sex: Female

DRUGS (1)
  1. CAMPATH [Suspect]
     Indication: NON-HODGKIN^S LYMPHOMA
     Dosage: 30 MG, 3X/W
     Route: 058
     Dates: start: 20120813, end: 20120820

REACTIONS (3)
  - Staphylococcal sepsis [Fatal]
  - Malignant neoplasm progression [Fatal]
  - Off label use [Unknown]
